FAERS Safety Report 4567196-2 (Version None)
Quarter: 2005Q1

REPORT INFORMATION
  Report Type: 
  Country: None (occurrence: None)
  Receive Date: 20050127
  Receipt Date: 20050115
  Transmission Date: 20050727
  Serious: Yes (Other)
  Sender: FDA-Public Use
  Company Number: 2004077732

PATIENT
  Age: 3 Year
  Sex: Female
  Weight: 14.9687 kg

DRUGS (7)
  1. ZYRTEC [Suspect]
     Indication: ARTHRALGIA
     Dosage: 5 MG (2.5 MG 2 IN 1 D) ORAL; (1 TSP 1 IN 1D)
     Route: 048
     Dates: start: 20040512, end: 20040929
  2. ZYRTEC [Suspect]
     Indication: SEASONAL ALLERGY
     Dosage: 5 MG (2.5 MG 2 IN 1 D) ORAL; (1 TSP 1 IN 1D)
     Route: 048
     Dates: start: 20040512, end: 20040929
  3. ZYRTEC [Suspect]
     Indication: SWELLING
     Dosage: 5 MG (2.5 MG 2 IN 1 D) ORAL; (1 TSP 1 IN 1D)
     Route: 048
     Dates: start: 20040512, end: 20040929
  4. ZYRTEC [Suspect]
     Indication: URTICARIA
     Dosage: 5 MG (2.5 MG 2 IN 1 D) ORAL; (1 TSP 1 IN 1D)
     Route: 048
     Dates: start: 20040512, end: 20040929
  5. BENADRYL [Suspect]
     Indication: SWELLING FACE
     Dosage: (0.5 TSP 1 IN 1 AS NECESSARY, ORAL
     Route: 048
  6. BENADRYL [Suspect]
     Indication: URTICARIA
     Dosage: (0.5 TSP 1 IN 1 AS NECESSARY, ORAL
     Route: 048
  7. NASAL PREPARATIONS              (NASAL PREPARATIONS) [Concomitant]

REACTIONS (8)
  - ANGIONEUROTIC OEDEMA [None]
  - COUGH [None]
  - DRUG INEFFECTIVE [None]
  - FOOD ALLERGY [None]
  - INCREASED UPPER AIRWAY SECRETION [None]
  - MEDICATION ERROR [None]
  - THERAPY NON-RESPONDER [None]
  - UNDERDOSE [None]
